FAERS Safety Report 7611591-1 (Version None)
Quarter: 2011Q3

REPORT INFORMATION
  Report Type: 
  Country: None (occurrence: None)
  Receive Date: 20110715
  Receipt Date: 20110707
  Transmission Date: 20111222
  Serious: Yes (Death, Hospitalization)
  Sender: FDA-Public Use
  Company Number: JP-GLAXOSMITHKLINE-B0727415A

PATIENT
  Age: 78 Year
  Sex: Male
  Weight: 53 kg

DRUGS (7)
  1. METILDIGOXIN [Concomitant]
     Dosage: .05MG PER DAY
     Route: 048
     Dates: end: 20100512
  2. MUCOSOLVAN [Concomitant]
     Indication: EMPHYSEMA
     Dosage: 45MG PER DAY
     Route: 048
     Dates: end: 20100512
  3. MAGNESIUM OXIDE [Concomitant]
     Dosage: 2G PER DAY
     Route: 048
     Dates: end: 20100512
  4. SERETIDE [Suspect]
     Indication: EMPHYSEMA
     Dosage: 500MCG PER DAY
     Route: 055
     Dates: start: 20091021, end: 20100225
  5. SPIRIVA [Concomitant]
     Indication: EMPHYSEMA
     Dosage: 18MCG PER DAY
     Route: 055
     Dates: end: 20100512
  6. MEDICON [Concomitant]
     Indication: EMPHYSEMA
     Dosage: 30MG PER DAY
     Route: 048
     Dates: end: 20100512
  7. CLEANAL [Concomitant]
     Indication: EMPHYSEMA
     Dosage: 1200MG PER DAY
     Route: 048
     Dates: end: 20100512

REACTIONS (2)
  - PNEUMOTHORAX [None]
  - INFECTION [None]
